FAERS Safety Report 6519834-2 (Version None)
Quarter: 2009Q4

REPORT INFORMATION
  Report Type: 
  Country: None (occurrence: None)
  Receive Date: 20091228
  Receipt Date: 20091228
  Transmission Date: 20100525
  Serious: Yes (Other)
  Sender: FDA-Public Use
  Company Number: None

PATIENT
  Sex: Female

DRUGS (7)
  1. ANAFRANIL [Suspect]
     Indication: OBSESSIVE-COMPULSIVE DISORDER
     Dosage: 75 MG ONE QHS PO
     Route: 048
     Dates: start: 20091021
  2. WELLBUTRIN XL [Suspect]
     Dosage: 150 MG TWO PO @ AM
     Route: 048
     Dates: start: 20091219
  3. KLONOPIN [Concomitant]
  4. DEPLIN [Concomitant]
  5. NEURONTIN [Concomitant]
  6. AMATIZA [Concomitant]
  7. ANUSOL [Concomitant]

REACTIONS (3)
  - DYSGRAPHIA [None]
  - PRODUCT SUBSTITUTION ISSUE [None]
  - TREMOR [None]
